FAERS Safety Report 8286995-7 (Version None)
Quarter: 2012Q2

REPORT INFORMATION
  Report Type: 
  Country: None (occurrence: None)
  Receive Date: 20120416
  Receipt Date: 20120409
  Transmission Date: 20120825
  Serious: Yes (Hospitalization)
  Sender: FDA-Public Use
  Company Number: GR-UCBSA-055007

PATIENT
  Age: 71 Year
  Sex: Male

DRUGS (9)
  1. METHOTREXATE [Concomitant]
  2. DIANYCOTYL [Concomitant]
  3. FILISINE [Concomitant]
  4. SPIRIVA [Concomitant]
  5. CIMZIA [Suspect]
     Indication: RHEUMATOID ARTHRITIS
     Route: 058
     Dates: start: 20111015, end: 20120315
  6. PREDNISOLONE [Concomitant]
  7. ZURCAZOL [Concomitant]
  8. CALCIORAL D3 [Concomitant]
  9. BESIX [Concomitant]

REACTIONS (1)
  - RESPIRATORY TRACT INFECTION [None]
